FAERS Safety Report 8134533-1 (Version None)
Quarter: 2012Q1

REPORT INFORMATION
  Report Type: 
  Country: None (occurrence: None)
  Receive Date: 20120214
  Receipt Date: 20120206
  Transmission Date: 20120608
  Serious: Yes (Other)
  Sender: FDA-Public Use
  Company Number: US-PFIZER INC-2012033150

PATIENT
  Sex: Female
  Weight: 49 kg

DRUGS (25)
  1. PULMICORT-100 [Concomitant]
     Indication: ASTHMA
     Dosage: UNK, 3X/DAY
  2. ZYRTEC [Concomitant]
     Dosage: UNK, DAILY
  3. DIAZEPAM [Concomitant]
     Indication: STRESS
     Dosage: 1 OR 2 MG, AS NEEDED
  4. PREDNISONE [Concomitant]
     Indication: MALAISE
     Dosage: 2.5 MG, AS NEEDED
  5. THEO-24 [Concomitant]
     Dosage: UNK, 2X/DAY
  6. PREMPRO [Suspect]
     Indication: OSTEOPOROSIS
     Dosage: UNK, 2X/DAY
     Route: 048
     Dates: end: 20120101
  7. CELEBREX [Suspect]
     Indication: INTERVERTEBRAL DISC PROTRUSION
  8. AMBIEN [Concomitant]
     Dosage: UNK, DAILY AT NIGHT
  9. SPIRIVA [Concomitant]
     Indication: ASTHMA
     Dosage: UNK, DAILY
  10. AMILORIDE [Concomitant]
     Dosage: UNK, ALTERNATE DAY
  11. VERAMYST [Concomitant]
     Dosage: UNK, DAILY
  12. FORADIL [Concomitant]
     Indication: ASTHMA
     Dosage: UNK, 3X/DAY
  13. SINGULAIR [Concomitant]
     Dosage: UNK, DAILY
  14. CALCIUM CARBONATE [Concomitant]
     Dosage: UNK
  15. PREDNISONE [Concomitant]
     Indication: PAIN
  16. LIDODERM [Concomitant]
     Indication: OSTEOPOROSIS
     Dosage: 5% PATCH
  17. CELEBREX [Suspect]
     Indication: ARTHRITIS
     Dosage: 200 MG, 2X/DAY
     Route: 048
  18. ALBUTEROL SULFATE [Concomitant]
     Indication: ASTHMA
     Dosage: UNK, 4X/DAY
  19. ACETAMINOPHEN [Concomitant]
     Dosage: UNK
  20. CALCIUM [Concomitant]
     Dosage: UNK
  21. LIDODERM [Concomitant]
     Indication: INTERVERTEBRAL DISC PROTRUSION
  22. CELEBREX [Suspect]
     Indication: SPINAL COLUMN STENOSIS
  23. NEXIUM [Concomitant]
     Dosage: UNK. 2X/DAY
  24. VITAMIN D [Concomitant]
     Dosage: UNK
  25. REGLAN [Concomitant]
     Indication: GASTROOESOPHAGEAL REFLUX DISEASE
     Dosage: 5 MG, 4X/DAY

REACTIONS (2)
  - PNEUMONIA [None]
  - INAPPROPRIATE SCHEDULE OF DRUG ADMINISTRATION [None]
